FAERS Safety Report 14693970 (Version 1)
Quarter: 2018Q1

REPORT INFORMATION
  Report Type: Spontaneous
  Country: CN (occurrence: CN)
  Receive Date: 20180329
  Receipt Date: 20180329
  Transmission Date: 20180509
  Serious: Yes (Hospitalization)
  Sender: FDA-Public Use
  Company Number: CN-JNJFOC-20180331795

PATIENT
  Age: 46 Year
  Sex: Male
  Weight: 60 kg

DRUGS (4)
  1. VENLAFAXINE HYDROCHLORIDE. [Concomitant]
     Active Substance: VENLAFAXINE HYDROCHLORIDE
     Indication: DEPRESSION
     Route: 048
     Dates: start: 20170920, end: 20170925
  2. RISPERDAL [Suspect]
     Active Substance: RISPERIDONE
     Indication: SCHIZOPHRENIA
     Route: 048
     Dates: start: 20150806, end: 20170912
  3. RISPERDAL [Suspect]
     Active Substance: RISPERIDONE
     Indication: SCHIZOPHRENIA
     Route: 048
     Dates: start: 20170912, end: 20170919
  4. VENLAFAXINE HYDROCHLORIDE. [Concomitant]
     Active Substance: VENLAFAXINE HYDROCHLORIDE
     Indication: DEPRESSION
     Route: 048
     Dates: start: 20170905, end: 201709

REACTIONS (6)
  - Tardive dyskinesia [Recovering/Resolving]
  - Depressed mood [Unknown]
  - Hospitalisation [Unknown]
  - Anxiety [Unknown]
  - Dysuria [Unknown]
  - Dyschezia [Unknown]

NARRATIVE: CASE EVENT DATE: 20170730
